FAERS Safety Report 20098255 (Version 4)
Quarter: 2023Q2

REPORT INFORMATION
  Report Type: Report from Study
  Country: CA (occurrence: CA)
  Receive Date: 20211122
  Receipt Date: 20230515
  Transmission Date: 20230722
  Serious: Yes (Death, Hospitalization, Other)
  Sender: FDA-Public Use
  Company Number: CA-HLS-202108806

PATIENT
  Age: 51 Year
  Sex: Male

DRUGS (21)
  1. CLOZARIL [Suspect]
     Active Substance: CLOZAPINE
     Indication: Product used for unknown indication
     Route: 048
     Dates: start: 20160111
  2. CLOZARIL [Suspect]
     Active Substance: CLOZAPINE
     Indication: Product used for unknown indication
     Route: 048
     Dates: start: 20160111
  3. CLOZARIL [Suspect]
     Active Substance: CLOZAPINE
     Indication: Product used for unknown indication
     Dosage: 25 MG BY MOUTH EVERY MORNING, 100 MG EVENING.
     Route: 048
  4. METOPROLOL [Concomitant]
     Active Substance: METOPROLOL
     Indication: Product used for unknown indication
     Dosage: 50 MG BY MOUTH TWICE DAILY
     Route: 048
  5. METFORMIN [Concomitant]
     Active Substance: METFORMIN HYDROCHLORIDE
     Indication: Product used for unknown indication
     Dosage: 1 G BY MOUTH TWICE DAILY
     Route: 048
  6. FENOFIBRATE [Concomitant]
     Active Substance: FENOFIBRATE
     Indication: Product used for unknown indication
     Dosage: 145 MG BY MOUTH ONCE DAILY
     Route: 048
  7. Ezetmib [Concomitant]
     Indication: Product used for unknown indication
     Dosage: 10 MG BY MOUTH DAILY
     Route: 048
  8. ROSUVASTATIN [Concomitant]
     Active Substance: ROSUVASTATIN
     Indication: Product used for unknown indication
     Dosage: 40 MG BY MOUTH ONCE DAILY
     Route: 048
  9. PEMBROLIZUMAB [Concomitant]
     Active Substance: PEMBROLIZUMAB
     Indication: Product used for unknown indication
     Dosage: 400 MG EVERY 6 WEEKS,
     Route: 065
  10. FLUOROURACIL\LEUCOVORIN CALCIUM\OXALIPLATIN [Concomitant]
     Active Substance: FLUOROURACIL\LEUCOVORIN CALCIUM\OXALIPLATIN
     Indication: Product used for unknown indication
     Dosage: EVERY 2 WEEKS
     Route: 065
     Dates: start: 20210630
  11. Dexamathsone [Concomitant]
     Indication: Product used for unknown indication
     Dosage: 4 MG BY MOUTH ONCE DAILY ON CHEMOTHERAPY DAYS
     Route: 048
  12. PROCHLORPERAZINE [Concomitant]
     Active Substance: PROCHLORPERAZINE
     Indication: Product used for unknown indication
     Route: 065
     Dates: end: 20211110
  13. ONDANSETRON [Concomitant]
     Active Substance: ONDANSETRON
     Indication: Product used for unknown indication
     Dosage: STOPPED DUE TO PROLONGED QTC
     Route: 065
     Dates: end: 20211110
  14. Akynzo [Concomitant]
     Indication: Product used for unknown indication
     Dosage: 300 MG / 0.5 MG
     Route: 065
  15. LANTUS [Concomitant]
     Active Substance: INSULIN GLARGINE
     Indication: Product used for unknown indication
     Dosage: 50 U SUBCUTANEOUS EVERY BEDTIME
     Route: 058
  16. ESCITALOPRAM [Concomitant]
     Active Substance: ESCITALOPRAM OXALATE
     Indication: Product used for unknown indication
     Dosage: 10 MG BY MOUTH ONCE DAILY
     Route: 048
  17. LOPERAMIDE [Concomitant]
     Active Substance: LOPERAMIDE
     Indication: Product used for unknown indication
     Dosage: 1 G BY MOUTH THREE TIMES DAILY
     Route: 048
  18. TINZAPARIN [Concomitant]
     Active Substance: TINZAPARIN
     Indication: Pulmonary embolism
     Dosage: 18000 IU
     Route: 065
  19. TINZAPARIN [Concomitant]
     Active Substance: TINZAPARIN
     Indication: Deep vein thrombosis
     Dosage: 18000 IU
     Route: 065
  20. PANTOPRAZOLE SODIUM [Concomitant]
     Active Substance: PANTOPRAZOLE SODIUM
     Indication: Product used for unknown indication
     Dosage: 40 MG BY MOUTH DAILY
     Route: 048
  21. Insulin humaloug [Concomitant]
     Indication: Product used for unknown indication
     Dosage: 28 UNITS THREE TIMES DAILY
     Route: 048

REACTIONS (24)
  - Neutrophil count decreased [Recovered/Resolved]
  - Anaemia [Unknown]
  - Anxiety [Unknown]
  - Confusional state [Unknown]
  - Deep vein thrombosis [Unknown]
  - Depression [Unknown]
  - Diarrhoea [Recovered/Resolved]
  - Eosinophil count decreased [Unknown]
  - Fall [Unknown]
  - Aspartate aminotransferase increased [Unknown]
  - Hypertension [Unknown]
  - Blood glucose decreased [Unknown]
  - Lymphocyte count decreased [Unknown]
  - Oesophageal carcinoma [Not Recovered/Not Resolved]
  - Movement disorder [Unknown]
  - Death [Fatal]
  - Long QT syndrome [Unknown]
  - Pulmonary embolism [Unknown]
  - Hyperhidrosis [Unknown]
  - Type 2 diabetes mellitus [Unknown]
  - Unresponsive to stimuli [Unknown]
  - Urinary retention [Unknown]
  - White blood cell count decreased [Recovered/Resolved]
  - Condition aggravated [Unknown]

NARRATIVE: CASE EVENT DATE: 20210401
